FAERS Safety Report 5820661-X (Version None)
Quarter: 2008Q3

REPORT INFORMATION
  Report Type: 
  Country: None (occurrence: None)
  Receive Date: 20080718
  Receipt Date: 20080718
  Transmission Date: 20090109
  Serious: Yes (Life-Threatening)
  Sender: FDA-Public Use
  Company Number: None

PATIENT
  Age: 52 Year
  Sex: Female
  Weight: 48.5349 kg

DRUGS (1)
  1. CHANTIX [Suspect]
     Indication: SMOKING CESSATION THERAPY
     Dosage: 1/2 MG TO START UP TO 3 CHANGED
     Dates: start: 20071210, end: 20071220

REACTIONS (5)
  - CONFUSIONAL STATE [None]
  - GASTROENTERITIS VIRAL [None]
  - HYPERSENSITIVITY [None]
  - INSOMNIA [None]
  - SUICIDAL IDEATION [None]
